FAERS Safety Report 9616763 (Version 1)
Quarter: 2013Q4

REPORT INFORMATION
  Report Type: Report from Study
  Country: FR (occurrence: FR)
  Receive Date: 20131011
  Receipt Date: 20131011
  Transmission Date: 20140711
  Serious: Yes (Death)
  Sender: FDA-Public Use
  Company Number: FR-ROCHE-1285638

PATIENT
  Sex: Male

DRUGS (8)
  1. RANIBIZUMAB [Suspect]
     Indication: AGE-RELATED MACULAR DEGENERATION
     Dosage: RIGHT EYE
     Route: 050
     Dates: start: 20080916
  2. RANIBIZUMAB [Suspect]
     Route: 050
     Dates: start: 20090126
  3. RANIBIZUMAB [Suspect]
     Route: 050
     Dates: start: 20090504
  4. RANIBIZUMAB [Suspect]
     Route: 050
     Dates: start: 20100208
  5. RANIBIZUMAB [Suspect]
     Route: 050
     Dates: start: 20100216
  6. RANIBIZUMAB [Suspect]
     Route: 050
     Dates: start: 20100308
  7. RANIBIZUMAB [Suspect]
     Route: 050
     Dates: start: 20100315
  8. RANIBIZUMAB [Suspect]
     Route: 050
     Dates: start: 20100408

REACTIONS (2)
  - Death [Fatal]
  - Inappropriate schedule of drug administration [Unknown]
